FAERS Safety Report 6871293-6 (Version None)
Quarter: 2010Q3

REPORT INFORMATION
  Report Type: 
  Country: None (occurrence: None)
  Receive Date: 20100723
  Receipt Date: 20100715
  Transmission Date: 20110219
  Serious: Yes (Other)
  Sender: FDA-Public Use
  Company Number: JP-ROCHE-716807

PATIENT
  Sex: Female
  Weight: 50 kg

DRUGS (4)
  1. ACTEMRA [Suspect]
     Indication: RHEUMATOID ARTHRITIS
     Route: 042
     Dates: start: 20081215, end: 20081215
  2. ISCOTIN [Concomitant]
     Route: 048
     Dates: start: 20081218
  3. PREDONINE [Concomitant]
     Route: 048
  4. BREDININ [Concomitant]
     Route: 048

REACTIONS (2)
  - IIIRD NERVE PARALYSIS [None]
  - VOCAL CORD PARALYSIS [None]
